FAERS Safety Report 5356443-5 (Version None)
Quarter: 2007Q2

REPORT INFORMATION
  Report Type: 
  Country: None (occurrence: None)
  Receive Date: 20070530
  Receipt Date: 20061023
  Transmission Date: 20071010
  Serious: Yes (Hospitalization)
  Sender: FDA-Public Use
  Company Number: US200609000250

PATIENT
  Sex: Female
  Weight: 61.2 kg

DRUGS (1)
  1. ZYPREXA [Suspect]

REACTIONS (4)
  - CEREBROVASCULAR ACCIDENT [None]
  - HYPERGLYCAEMIA [None]
  - VISION BLURRED [None]
  - WEIGHT DECREASED [None]
